FAERS Safety Report 25251446 (Version 2)
Quarter: 2025Q2

REPORT INFORMATION
  Report Type: Spontaneous
  Country: CN (occurrence: CN)
  Receive Date: 20250429
  Receipt Date: 20250505
  Transmission Date: 20250716
  Serious: Yes (Death, Other)
  Sender: NOVARTIS
  Company Number: CN-002147023-NVSC2025CN068519

PATIENT
  Age: 58 Year
  Sex: Female

DRUGS (10)
  1. DABRAFENIB [Suspect]
     Active Substance: DABRAFENIB
     Indication: Malignant melanoma
     Dosage: 150 MG, BID
     Route: 048
  2. DABRAFENIB [Suspect]
     Active Substance: DABRAFENIB
     Indication: Squamous cell carcinoma of the cervix
     Dosage: 75 MG, BID
     Route: 048
  3. TRAMETINIB [Suspect]
     Active Substance: TRAMETINIB
     Indication: Malignant melanoma
     Dosage: 2 MG, QD
     Route: 048
  4. TRAMETINIB [Suspect]
     Active Substance: TRAMETINIB
     Indication: Squamous cell carcinoma of the cervix
     Dosage: 1 MG, QD
     Route: 048
  5. PEMBROLIZUMAB [Suspect]
     Active Substance: PEMBROLIZUMAB
     Indication: Malignant melanoma
     Dosage: 200 MG, Q3W
     Route: 042
     Dates: start: 202111, end: 202303
  6. PEMBROLIZUMAB [Suspect]
     Active Substance: PEMBROLIZUMAB
     Indication: Squamous cell carcinoma of the cervix
     Route: 042
  7. PEMBROLIZUMAB [Suspect]
     Active Substance: PEMBROLIZUMAB
     Indication: Malignant melanoma
     Route: 037
  8. PEMBROLIZUMAB [Suspect]
     Active Substance: PEMBROLIZUMAB
     Indication: Squamous cell carcinoma of the cervix
     Route: 037
  9. CADONILIMAB [Suspect]
     Active Substance: CADONILIMAB
     Indication: Malignant melanoma
     Route: 065
  10. CADONILIMAB [Suspect]
     Active Substance: CADONILIMAB
     Indication: Squamous cell carcinoma of the cervix

REACTIONS (6)
  - Metastases to central nervous system [Fatal]
  - Metastatic malignant melanoma [Fatal]
  - Squamous cell carcinoma of the cervix [Fatal]
  - Malignant neoplasm progression [Fatal]
  - Gastrointestinal disorder [Unknown]
  - Pyrexia [Unknown]
